FAERS Safety Report 6666230-3 (Version None)
Quarter: 2010Q1

REPORT INFORMATION
  Report Type: 
  Country: None (occurrence: None)
  Receive Date: 20100331
  Receipt Date: 20100319
  Transmission Date: 20100710
  Serious: No
  Sender: FDA-Public Use
  Company Number: 10-000162

PATIENT
  Sex: Male

DRUGS (1)
  1. DORYX [Suspect]
     Dosage: 150 MG, QD, ORAL
     Route: 048

REACTIONS (1)
  - RETINAL SCAR [None]
